FAERS Safety Report 16705838 (Version 1)
Quarter: 2019Q3

REPORT INFORMATION
  Report Type: Spontaneous
  Country: US (occurrence: US)
  Receive Date: 20190815
  Receipt Date: 20190815
  Transmission Date: 20191004
  Serious: No
  Sender: FDA-Public Use
  Company Number: US-MYLANLABS-2019M1072504

PATIENT
  Sex: Female

DRUGS (1)
  1. FENTANYL TRANSDERMAL SYSTEM [Suspect]
     Active Substance: FENTANYL
     Indication: BACK PAIN
     Dosage: 150 MICROGRAM, QD
     Route: 062

REACTIONS (4)
  - Adverse event [Recovered/Resolved]
  - Application site erythema [Recovered/Resolved]
  - Incorrect product administration duration [Recovered/Resolved]
  - Application site vesicles [Recovered/Resolved]
